FAERS Safety Report 19392152 (Version 1)
Quarter: 2021Q2

REPORT INFORMATION
  Report Type: Spontaneous
  Country: CN (occurrence: CN)
  Receive Date: 20210608
  Receipt Date: 20210608
  Transmission Date: 20210717
  Serious: Yes (Hospitalization)
  Sender: FDA-Public Use
  Company Number: CN-PFIZER INC-2021607791

PATIENT
  Age: 32 Year
  Sex: Female
  Weight: 44 kg

DRUGS (3)
  1. KEAILI [Suspect]
     Active Substance: PACLITAXEL
     Indication: BREAST CANCER
     Dosage: 350.000 MG, 1X/DAY
     Route: 041
     Dates: start: 20210506, end: 20210506
  2. ENDOXAN [CYCLOPHOSPHAMIDE] [Suspect]
     Active Substance: CYCLOPHOSPHAMIDE
     Indication: BREAST CANCER
     Dosage: 700.000 MG, 1X/DAY
     Route: 041
     Dates: start: 20210506, end: 20210506
  3. PHARMORUBICIN [Suspect]
     Active Substance: EPIRUBICIN
     Indication: BREAST CANCER
     Dosage: 90 MG, 1X/DAY
     Route: 041
     Dates: start: 20210506, end: 20210506

REACTIONS (1)
  - Drug-induced liver injury [Recovering/Resolving]

NARRATIVE: CASE EVENT DATE: 20210517
